FAERS Safety Report 7029766-1 (Version None)
Quarter: 2010Q4

REPORT INFORMATION
  Report Type: 
  Country: None (occurrence: None)
  Receive Date: 20101001
  Receipt Date: 20100923
  Transmission Date: 20110411
  Serious: Yes (Hospitalization)
  Sender: FDA-Public Use
  Company Number: 7018466

PATIENT
  Age: 89 Year
  Sex: Female

DRUGS (7)
  1. LEVOTHYROXINE SODIUM [Suspect]
     Indication: HYPOTHYROIDISM
     Dosage: ORAL
     Route: 048
     Dates: start: 20091010, end: 20091026
  2. PRADAXA [Suspect]
     Indication: POSTOPERATIVE THROMBOSIS
     Dosage: ORAL
     Route: 048
     Dates: start: 20091008, end: 20091027
  3. ZOLPIDEM [Suspect]
     Indication: INSOMNIA
     Dosage: 1 DF (1 DF, 1 IN 1 D), ORAL
     Route: 048
     Dates: start: 20091012, end: 20091023
  4. DOLIPRANE (PARACETAMOL) (PARACETAMOL0 [Suspect]
     Indication: PAIN
     Dosage: 3 GM (1 GM, 3 IN 1 D), ORAL
     Route: 048
     Dates: start: 20091008, end: 20091026
  5. TARDYFERON (FERROUS SULFATE) (FERROUS SULFATE) [Concomitant]
  6. SPECIAFOLDINE (FOLIC ACID) (FOLIC ACID) [Concomitant]
  7. INEXIUM (ESOMEPRAZOLE MAGNESIUM) (ESOMEPRAZOLE MAGNESIUM) [Concomitant]

REACTIONS (1)
  - NEUTROPENIA [None]
